FAERS Safety Report 6737790-9 (Version None)
Quarter: 2010Q2

REPORT INFORMATION
  Report Type: 
  Country: None (occurrence: None)
  Receive Date: 20100520
  Receipt Date: 20100511
  Transmission Date: 20101027
  Serious: Yes (Other)
  Sender: FDA-Public Use
  Company Number: 2010US001613

PATIENT
  Age: 36 Year
  Sex: Female

DRUGS (3)
  1. PROGRAF [Suspect]
     Indication: RENAL TRANSPLANT
  2. PREDNISONE TAB [Concomitant]
  3. AZATHIOPRINE [Concomitant]

REACTIONS (4)
  - CANDIDIASIS [None]
  - CHRONIC ALLOGRAFT NEPHROPATHY [None]
  - RENAL GRAFT LOSS [None]
  - URETERIC OBSTRUCTION [None]
